FAERS Safety Report 12561483 (Version 1)
Quarter: 2016Q3

REPORT INFORMATION
  Report Type: Spontaneous
  Country: JP (occurrence: JP)
  Receive Date: 20160715
  Receipt Date: 20160715
  Transmission Date: 20161109
  Serious: Yes (Death, Hospitalization, Other)
  Sender: FDA-Public Use
  Company Number: JP-CIPLA LTD.-2013JP00427

PATIENT

DRUGS (6)
  1. CARBOPLATIN. [Suspect]
     Active Substance: CARBOPLATIN
     Dosage: AUC 5 DAY 1, Q 28 DAYS
     Route: 065
  2. CARBOPLATIN. [Suspect]
     Active Substance: CARBOPLATIN
     Indication: SQUAMOUS CELL CARCINOMA
     Dosage: AUC 2 (WEEKLY),UNK
     Route: 065
  3. FLUOROURACIL. [Suspect]
     Active Substance: FLUOROURACIL
     Dosage: 1000 MG/M2, UNK, 1 TO 4 FOR 4 WEEKS
  4. TS-1 [Suspect]
     Active Substance: GIMERACIL\OTERACIL\TEGAFUR
     Dosage: 80 MG/BODY/DAY, FOR 24 DAYS
     Route: 065
  5. FLUOROURACIL. [Suspect]
     Active Substance: FLUOROURACIL
     Dosage: 1000 MG/M2, DAY 1 TO 4, Q 28 DAYS
     Route: 065
  6. PACLITAXEL. [Suspect]
     Active Substance: PACLITAXEL
     Indication: SQUAMOUS CELL CARCINOMA
     Dosage: 30 MG/M2, UNK
     Route: 065

REACTIONS (7)
  - Disease progression [Unknown]
  - Activities of daily living impaired [Unknown]
  - Cellulitis [Unknown]
  - Gastrointestinal haemorrhage [Fatal]
  - Sepsis [Fatal]
  - Dementia [Unknown]
  - Joint contracture [Unknown]

NARRATIVE: CASE EVENT DATE: 201009
